FAERS Safety Report 25602292 (Version 1)
Quarter: 2025Q3

REPORT INFORMATION
  Report Type: Spontaneous
  Country: US (occurrence: US)
  Receive Date: 20250724
  Receipt Date: 20250724
  Transmission Date: 20251021
  Serious: No
  Sender: EISAI
  Company Number: US-Eisai-EC-2025-193072

PATIENT
  Sex: Male

DRUGS (2)
  1. LEQEMBI [Suspect]
     Active Substance: LECANEMAB-IRMB
     Indication: Dementia Alzheimer^s type
  2. LEQEMBI [Suspect]
     Active Substance: LECANEMAB-IRMB
     Dosage: DOSE UNKNOWN

REACTIONS (1)
  - Infusion related reaction [Recovered/Resolved]
